FAERS Safety Report 5993861-6 (Version None)
Quarter: 2008Q4

REPORT INFORMATION
  Report Type: 
  Country: None (occurrence: None)
  Receive Date: 20081212
  Receipt Date: 20081013
  Transmission Date: 20090506
  Serious: No
  Sender: FDA-Public Use
  Company Number: US-ABBOTT-07P-163-0426891-00

PATIENT
  Sex: Female
  Weight: 90.8 kg

DRUGS (7)
  1. HUMIRA [Suspect]
     Indication: PSORIATIC ARTHROPATHY
     Route: 058
     Dates: start: 20060901, end: 20071122
  2. HUMIRA [Suspect]
     Route: 058
     Dates: start: 20080115
  3. SUMATRIPTAN [Concomitant]
     Indication: HEADACHE
  4. PREDNISONE TAB [Concomitant]
     Indication: PSORIASIS
     Route: 048
  5. ACETAMINOPHEN [Concomitant]
     Indication: DRUG USE FOR UNKNOWN INDICATION
     Route: 048
  6. BLOOD PRESSURE MEDICATION [Concomitant]
     Indication: HYPERTENSION
     Route: 048
  7. ANXIETY MEDICATION [Concomitant]
     Indication: DRUG USE FOR UNKNOWN INDICATION
     Route: 048

REACTIONS (3)
  - HYPOAESTHESIA FACIAL [None]
  - LIPOMA [None]
  - MIGRAINE [None]
